FAERS Safety Report 19096677 (Version 1)
Quarter: 2021Q2

REPORT INFORMATION
  Report Type: Report from Study
  Country: CA (occurrence: CA)
  Receive Date: 20210406
  Receipt Date: 20210406
  Transmission Date: 20210717
  Serious: Yes (Other)
  Sender: FDA-Public Use
  Company Number: CA-BIOGEN-2021BI00996052

PATIENT
  Age: 35 Year
  Sex: Male

DRUGS (2)
  1. TECFIDERA [Suspect]
     Active Substance: DIMETHYL FUMARATE
     Dosage: 120MG IN AM PO/ 240MG PM PO
     Route: 048
     Dates: start: 20210310
  2. TECFIDERA [Suspect]
     Active Substance: DIMETHYL FUMARATE
     Indication: RELAPSING-REMITTING MULTIPLE SCLEROSIS
     Dosage: 120MG IN AM PO/ 240MG PM PO
     Route: 048
     Dates: start: 20210310

REACTIONS (2)
  - Overdose [Unknown]
  - Myelitis transverse [Unknown]

NARRATIVE: CASE EVENT DATE: 20210310
